FAERS Safety Report 4376196-7 (Version None)
Quarter: 2004Q2

REPORT INFORMATION
  Report Type: 
  Country: None (occurrence: None)
  Receive Date: 20040610
  Receipt Date: 20040610
  Transmission Date: 20050107
  Serious: Yes (Disabling)
  Sender: FDA-Public Use
  Company Number: None

PATIENT
  Age: 40 Year
  Sex: Male
  Weight: 72.5755 kg

DRUGS (2)
  1. CIPROFLOXACIN [Suspect]
     Indication: INFECTION
     Dosage: 1 TABLET (2X) PER DAY ORAL
     Route: 048
     Dates: start: 20040419, end: 20040423
  2. CIPROFLOXACIN [Suspect]
     Indication: PHARYNGITIS STREPTOCOCCAL
     Dosage: 1 TABLET (2X) PER DAY ORAL
     Route: 048
     Dates: start: 20040419, end: 20040423

REACTIONS (1)
  - TENDONITIS [None]
